FAERS Safety Report 8166405 (Version 50)
Quarter: 2024Q1

REPORT INFORMATION
  Report Type: Spontaneous
  Country: GB (occurrence: GB)
  Receive Date: 20110920
  Receipt Date: 20240305
  Transmission Date: 20240410
  Serious: Yes (Life-Threatening, Hospitalization, Disabling, Congenital Anomaly, Other)
  Sender: FDA-Public Use
  Company Number: None

PATIENT
  Age: 31 Year
  Sex: Female
  Weight: 63.5 kg

DRUGS (104)
  1. AMITRIPTYLINE [Interacting]
     Active Substance: AMITRIPTYLINE
     Indication: Muscle spasms
     Dosage: DOSGAE FORM : UNSPECIFIED,AT NIGHT
     Dates: start: 20110810
  2. DIAZEPAM [Interacting]
     Active Substance: DIAZEPAM
     Indication: Muscle spasms
     Dosage: DOSAGE FORM : UNSPECIFIED
     Route: 048
     Dates: start: 20110725
  3. MIRTAZAPINE [Interacting]
     Active Substance: MIRTAZAPINE
     Indication: Depression
     Dosage: DOSAGE FORM : UNSPECIFIED, 30 MG IN THE DAY AND 15 MG AT NIGHT
     Route: 048
     Dates: start: 20101007, end: 20101012
  4. OMEPRAZOLE [Interacting]
     Active Substance: OMEPRAZOLE
     Indication: Dyspepsia
     Dosage: 20 MG PER DAY?DOSAGE FORM : UNSPECIFIED
     Route: 048
     Dates: start: 20110525
  5. QUETIAPINE FUMARATE [Interacting]
     Active Substance: QUETIAPINE FUMARATE
     Indication: Psychotic disorder
     Route: 048
     Dates: start: 20110224, end: 20110506
  6. TRAMADOL HYDROCHLORIDE [Interacting]
     Active Substance: TRAMADOL HYDROCHLORIDE
     Indication: Neck pain
     Dosage: DISCONTINUED AFTER 4 OR 5 DAYS(50-100 QD), 4 CYCLICAL
     Route: 048
     Dates: start: 20081201, end: 20101210
  7. CODEINE [Interacting]
     Active Substance: CODEINE
     Indication: Analgesic therapy
     Dosage: DOSAGE FORM : UNSPECIFIED, 15-30 MG
     Route: 048
     Dates: start: 20110615, end: 20110723
  8. PAROXETINE [Interacting]
     Active Substance: PAROXETINE
     Indication: Depression
     Route: 048
     Dates: start: 19990801, end: 20110706
  9. CLONAZEPAM [Interacting]
     Active Substance: CLONAZEPAM
     Indication: Sedation
     Dosage: DOSAGE FORM : UNSPECIFIED
     Route: 048
     Dates: start: 20110224, end: 20110410
  10. DOMPERIDONE [Interacting]
     Active Substance: DOMPERIDONE
     Indication: Product used for unknown indication
     Dosage: DOSAGE FORM : UNSPECIFIED
     Route: 048
  11. LORAZEPAM [Interacting]
     Active Substance: LORAZEPAM
     Indication: Sedation
     Dosage: DOSAGE FORM : UNSPECIFIED
     Route: 048
     Dates: start: 20110224, end: 20110410
  12. PROCYCLIDINE [Interacting]
     Active Substance: PROCYCLIDINE
     Indication: Extrapyramidal disorder
     Route: 048
     Dates: start: 20110324, end: 20110506
  13. PAROXETINE HYDROCHLORIDE [Interacting]
     Active Substance: PAROXETINE HYDROCHLORIDE\PAROXETINE HYDROCHLORIDE ANHYDROUS
     Indication: Depression
     Dosage: 20 MG THREE TIMES PER DAY?SEROXAT WAS AGAIN STARTED FROMMAY-2011 TO 6-JUL-2011
     Route: 048
     Dates: start: 19990801, end: 201105
  14. PHOSPHORUS [Interacting]
     Active Substance: PHOSPHORUS
     Indication: Product used for unknown indication
  15. PROCYCLIDINE [Interacting]
     Active Substance: PROCYCLIDINE
     Indication: Extrapyramidal disorder
     Dosage: 15 MG, QD
     Route: 048
     Dates: start: 20110503, end: 20110510
  16. PROCYCLIDINE [Interacting]
     Active Substance: PROCYCLIDINE
     Indication: Oculogyric crisis
     Route: 048
     Dates: start: 1995, end: 1996
  17. MIRTAZAPINE [Interacting]
     Active Substance: MIRTAZAPINE
     Indication: Depression
     Dosage: 30 MG, UNK UNSURE
     Route: 048
     Dates: start: 20100923, end: 20101108
  18. PAROXETINE HYDROCHLORIDE [Interacting]
     Active Substance: PAROXETINE HYDROCHLORIDE\PAROXETINE HYDROCHLORIDE ANHYDROUS
     Indication: Depression
     Dosage: THREE TIMES PER DAY
     Route: 048
     Dates: start: 201105, end: 20110706
  19. PAROXETINE HYDROCHLORIDE [Interacting]
     Active Substance: PAROXETINE HYDROCHLORIDE\PAROXETINE HYDROCHLORIDE ANHYDROUS
     Indication: Depression
     Route: 048
     Dates: start: 201105, end: 20110706
  20. PAROXETINE HYDROCHLORIDE [Interacting]
     Active Substance: PAROXETINE HYDROCHLORIDE\PAROXETINE HYDROCHLORIDE ANHYDROUS
     Indication: Depression
     Route: 048
     Dates: start: 19990801, end: 201105
  21. LORAZEPAM [Interacting]
     Active Substance: LORAZEPAM
     Indication: Sedation
     Dosage: 1 MG, UNK
     Route: 048
     Dates: start: 20110523, end: 20110627
  22. LORAZEPAM [Interacting]
     Active Substance: LORAZEPAM
     Indication: Sedation
     Dosage: 1 MG, QID
     Route: 048
     Dates: start: 20110523, end: 20110627
  23. DIAZEPAM [Interacting]
     Active Substance: DIAZEPAM
     Indication: Muscle spasms
     Dosage: DOSAGE FORM : UNSPECIFIED
     Dates: start: 20110725, end: 20110725
  24. DIAZEPAM [Interacting]
     Active Substance: DIAZEPAM
     Indication: Serotonin syndrome
     Route: 048
     Dates: start: 20110725
  25. DIAZEPAM [Interacting]
     Active Substance: DIAZEPAM
     Indication: Muscle spasms
     Dates: start: 20110725
  26. AMITRIPTYLINE [Interacting]
     Active Substance: AMITRIPTYLINE
     Indication: Neuralgia
  27. AMITRIPTYLINE [Interacting]
     Active Substance: AMITRIPTYLINE
     Indication: Neuralgia
  28. AMITRIPTYLINE [Interacting]
     Active Substance: AMITRIPTYLINE
     Indication: Drug withdrawal syndrome
  29. AMITRIPTYLINE [Interacting]
     Active Substance: AMITRIPTYLINE
     Indication: Neuralgia
  30. AMITRIPTYLINE [Interacting]
     Active Substance: AMITRIPTYLINE
     Indication: Neuralgia
  31. AMITRIPTYLINE [Interacting]
     Active Substance: AMITRIPTYLINE
     Indication: Drug withdrawal syndrome
  32. DIAZEPAM [Interacting]
     Active Substance: DIAZEPAM
     Indication: Depression
  33. DOMPERIDONE [Interacting]
     Active Substance: DOMPERIDONE
     Indication: Product used for unknown indication
     Dosage: UNK
     Route: 048
     Dates: start: 20100923, end: 20101108
  34. LORAZEPAM [Interacting]
     Active Substance: LORAZEPAM
     Indication: Sedation
     Route: 048
     Dates: start: 20110725
  35. MIRTAZAPINE [Interacting]
     Active Substance: MIRTAZAPINE
     Indication: Depression
     Dosage: 30MG IN THE DAY AND 15MG AT NIGHT
     Dates: start: 20110224, end: 20110506
  36. MIRTAZAPINE [Interacting]
     Active Substance: MIRTAZAPINE
     Indication: Depression
     Dosage: 30MG IN THE DAY AND 15MG AT NIGHT
     Dates: start: 20110224, end: 20110506
  37. MIRTAZAPINE [Interacting]
     Active Substance: MIRTAZAPINE
     Indication: Psychotic disorder
     Dosage: 30MG IN THE DAY AND 15MG AT NIGHT
  38. MIRTAZAPINE [Interacting]
     Active Substance: MIRTAZAPINE
     Indication: Depression
     Dosage: 30MG IN THE DAY AND 15MG AT NIGHT
     Dates: start: 20110224, end: 20110506
  39. MIRTAZAPINE [Interacting]
     Active Substance: MIRTAZAPINE
     Indication: Psychotic disorder
     Dosage: 30MG IN THE DAY AND 15MG AT NIGHT
  40. MIRTAZAPINE [Interacting]
     Active Substance: MIRTAZAPINE
     Indication: Depression
     Dosage: 30MG IN THE DAY AND 15MG AT NIGHT
     Dates: start: 20110224, end: 20110506
  41. MIRTAZAPINE [Interacting]
     Active Substance: MIRTAZAPINE
     Indication: Psychotic disorder
     Dosage: 30MG IN THE DAY AND 15MG AT NIGHT
  42. QUETIAPINE FUMARATE [Interacting]
     Active Substance: QUETIAPINE FUMARATE
     Route: 048
     Dates: start: 19990801, end: 20110706
  43. PROCYCLIDINE [Interacting]
     Active Substance: PROCYCLIDINE
     Indication: Oculogyric crisis
     Dates: start: 20110415
  44. PROCYCLIDINE [Interacting]
     Active Substance: PROCYCLIDINE
     Indication: Oculogyric crisis
     Dates: start: 20110415
  45. PROCYCLIDINE [Interacting]
     Active Substance: PROCYCLIDINE
     Indication: Oculogyric crisis
     Dates: start: 20110415
  46. LORAZEPAM [Interacting]
     Active Substance: LORAZEPAM
     Indication: Sedation
     Route: 048
     Dates: start: 20110202, end: 20110410
  47. PAROXETINE HYDROCHLORIDE [Interacting]
     Active Substance: PAROXETINE HYDROCHLORIDE\PAROXETINE HYDROCHLORIDE ANHYDROUS
     Indication: Depression
     Route: 048
     Dates: start: 20101201, end: 201105
  48. PAROXETINE HYDROCHLORIDE [Interacting]
     Active Substance: PAROXETINE HYDROCHLORIDE\PAROXETINE HYDROCHLORIDE ANHYDROUS
     Indication: Depression
     Dosage: 20 MILLIGRAM, TID
     Route: 048
     Dates: start: 1997
  49. LORAZEPAM [Interacting]
     Active Substance: LORAZEPAM
     Indication: Sedation
     Route: 048
     Dates: start: 20110202, end: 20110410
  50. PAROXETINE HYDROCHLORIDE [Interacting]
     Active Substance: PAROXETINE HYDROCHLORIDE\PAROXETINE HYDROCHLORIDE ANHYDROUS
     Indication: Depression
     Route: 048
     Dates: start: 20101201, end: 201105
  51. PAROXETINE HYDROCHLORIDE [Interacting]
     Active Substance: PAROXETINE HYDROCHLORIDE\PAROXETINE HYDROCHLORIDE ANHYDROUS
     Indication: Depression
     Dosage: 20 MILLIGRAM, TID
     Route: 048
     Dates: start: 1997, end: 201105
  52. LORAZEPAM [Interacting]
     Active Substance: LORAZEPAM
     Indication: Sedation
     Route: 048
     Dates: start: 20110202, end: 20110410
  53. PAROXETINE HYDROCHLORIDE [Interacting]
     Active Substance: PAROXETINE HYDROCHLORIDE\PAROXETINE HYDROCHLORIDE ANHYDROUS
     Indication: Depression
     Route: 048
     Dates: start: 20101201, end: 201105
  54. PAROXETINE HYDROCHLORIDE [Interacting]
     Active Substance: PAROXETINE HYDROCHLORIDE\PAROXETINE HYDROCHLORIDE ANHYDROUS
     Indication: Depression
     Dosage: 20 MILLIGRAM, TID
     Dates: start: 1997
  55. PROCYCLIDINE [Interacting]
     Active Substance: PROCYCLIDINE
     Indication: Oculogyric crisis
     Dosage: 5 MG, QD
     Route: 048
     Dates: start: 1995, end: 1995
  56. PROCYCLIDINE [Interacting]
     Active Substance: PROCYCLIDINE
     Indication: Oculogyric crisis
     Dosage: 5 MG, QD
     Route: 048
     Dates: start: 1995, end: 1995
  57. PAROXETINE HYDROCHLORIDE [Interacting]
     Active Substance: PAROXETINE HYDROCHLORIDE\PAROXETINE HYDROCHLORIDE ANHYDROUS
     Indication: Product used for unknown indication
     Route: 048
     Dates: start: 1999
  58. PAROXETINE HYDROCHLORIDE [Interacting]
     Active Substance: PAROXETINE HYDROCHLORIDE\PAROXETINE HYDROCHLORIDE ANHYDROUS
     Indication: Product used for unknown indication
     Route: 048
     Dates: start: 200812, end: 20101210
  59. PAROXETINE HYDROCHLORIDE [Interacting]
     Active Substance: PAROXETINE HYDROCHLORIDE\PAROXETINE HYDROCHLORIDE ANHYDROUS
     Indication: Product used for unknown indication
     Route: 048
     Dates: start: 201012
  60. PAROXETINE HYDROCHLORIDE [Interacting]
     Active Substance: PAROXETINE HYDROCHLORIDE\PAROXETINE HYDROCHLORIDE ANHYDROUS
     Indication: Product used for unknown indication
     Route: 048
     Dates: start: 1999
  61. PAROXETINE HYDROCHLORIDE [Interacting]
     Active Substance: PAROXETINE HYDROCHLORIDE\PAROXETINE HYDROCHLORIDE ANHYDROUS
     Indication: Product used for unknown indication
     Route: 048
     Dates: start: 200812, end: 20101210
  62. PAROXETINE HYDROCHLORIDE [Interacting]
     Active Substance: PAROXETINE HYDROCHLORIDE\PAROXETINE HYDROCHLORIDE ANHYDROUS
     Indication: Product used for unknown indication
     Route: 048
     Dates: start: 201012
  63. DIAZEPAM [Interacting]
     Active Substance: DIAZEPAM
     Indication: Serotonin syndrome
     Route: 048
     Dates: start: 20110725
  64. DIAZEPAM [Interacting]
     Active Substance: DIAZEPAM
     Indication: Serotonin syndrome
     Route: 048
  65. TRAMADOL HYDROCHLORIDE [Interacting]
     Active Substance: TRAMADOL HYDROCHLORIDE
     Indication: Analgesic therapy
     Dosage: UNSPECIFIED, 50-100, 4 CYCLICAL
     Route: 048
     Dates: start: 20080722
  66. TRAMADOL HYDROCHLORIDE [Interacting]
     Active Substance: TRAMADOL HYDROCHLORIDE
     Indication: Product used for unknown indication
     Dosage: 5 MG
     Route: 048
     Dates: start: 1995, end: 1995
  67. TRAMADOL HYDROCHLORIDE [Interacting]
     Active Substance: TRAMADOL HYDROCHLORIDE
     Indication: Neck pain
     Dosage: 5 MG
     Route: 044
     Dates: start: 1995, end: 1995
  68. TRAMADOL HYDROCHLORIDE [Interacting]
     Active Substance: TRAMADOL HYDROCHLORIDE
     Indication: Neck pain
     Route: 044
     Dates: start: 1995, end: 1995
  69. TRAMADOL HYDROCHLORIDE [Interacting]
     Active Substance: TRAMADOL HYDROCHLORIDE
     Indication: Oculogyric crisis
     Route: 048
     Dates: start: 1995, end: 1996
  70. TRAMADOL HYDROCHLORIDE [Interacting]
     Active Substance: TRAMADOL HYDROCHLORIDE
     Indication: Product used for unknown indication
     Dosage: 8 MG, QD
     Dates: start: 20110725
  71. TRAMADOL HYDROCHLORIDE [Interacting]
     Active Substance: TRAMADOL HYDROCHLORIDE
     Indication: Muscle spasms
     Dosage: 5 MG, 4 TIMES A DAY
     Dates: start: 20110725
  72. TRAMADOL HYDROCHLORIDE [Interacting]
     Active Substance: TRAMADOL HYDROCHLORIDE
     Indication: Serotonin syndrome
     Dosage: 5 MG QDS AND NOW ON 2-2-4 MG
     Dates: start: 20110725
  73. AMITRIPTYLINE [Interacting]
     Active Substance: AMITRIPTYLINE
     Indication: Serotonin syndrome
  74. AMITRIPTYLINE [Interacting]
     Active Substance: AMITRIPTYLINE
     Indication: Serotonin syndrome
  75. PROCYCLIDINE [Interacting]
     Active Substance: PROCYCLIDINE
     Indication: Oculogyric crisis
     Dosage: 5 MG, TID
     Route: 048
     Dates: start: 20110503, end: 20110510
  76. PROCYCLIDINE [Interacting]
     Active Substance: PROCYCLIDINE
     Indication: Extrapyramidal disorder
     Route: 048
     Dates: start: 1995, end: 1996
  77. LORAZEPAM [Interacting]
     Active Substance: LORAZEPAM
     Indication: Product used for unknown indication
     Route: 048
     Dates: start: 20110224, end: 20110410
  78. LORAZEPAM [Interacting]
     Active Substance: LORAZEPAM
     Indication: Product used for unknown indication
     Route: 048
     Dates: start: 20110224, end: 20110410
  79. PAROXETINE HYDROCHLORIDE [Interacting]
     Active Substance: PAROXETINE HYDROCHLORIDE\PAROXETINE HYDROCHLORIDE ANHYDROUS
     Indication: Depression
     Dosage: 20 MG, BID
     Route: 048
     Dates: start: 2011, end: 20110706
  80. TRAMADOL HYDROCHLORIDE [Interacting]
     Active Substance: TRAMADOL HYDROCHLORIDE
     Indication: Neck pain
     Route: 048
     Dates: start: 20081201, end: 20101201
  81. TRAMADOL HYDROCHLORIDE [Interacting]
     Active Substance: TRAMADOL HYDROCHLORIDE
     Indication: Product used for unknown indication
     Route: 048
     Dates: start: 20081201, end: 20101201
  82. TRAMADOL HYDROCHLORIDE [Interacting]
     Active Substance: TRAMADOL HYDROCHLORIDE
     Indication: Product used for unknown indication
     Route: 048
     Dates: start: 20081201, end: 20101201
  83. TRAMADOL HYDROCHLORIDE [Interacting]
     Active Substance: TRAMADOL HYDROCHLORIDE
     Indication: Product used for unknown indication
     Route: 048
     Dates: start: 20081201, end: 20101201
  84. TRAMADOL HYDROCHLORIDE [Interacting]
     Active Substance: TRAMADOL HYDROCHLORIDE
     Indication: Product used for unknown indication
     Route: 048
     Dates: start: 20081201, end: 20101201
  85. TRAMADOL HYDROCHLORIDE [Interacting]
     Active Substance: TRAMADOL HYDROCHLORIDE
     Indication: Product used for unknown indication
     Route: 048
     Dates: start: 20081201, end: 20101201
  86. TRAMADOL HYDROCHLORIDE [Interacting]
     Active Substance: TRAMADOL HYDROCHLORIDE
     Indication: Product used for unknown indication
     Route: 048
     Dates: start: 20081201, end: 20101201
  87. TRAMADOL HYDROCHLORIDE [Interacting]
     Active Substance: TRAMADOL HYDROCHLORIDE
     Indication: Analgesic therapy
     Route: 044
     Dates: start: 1995, end: 1996
  88. TRAMADOL HYDROCHLORIDE [Interacting]
     Active Substance: TRAMADOL HYDROCHLORIDE
     Indication: Analgesic therapy
     Route: 044
     Dates: start: 1995, end: 1996
  89. TRAMADOL HYDROCHLORIDE [Interacting]
     Active Substance: TRAMADOL HYDROCHLORIDE
     Indication: Product used for unknown indication
     Dosage: 4 CYCLICAL, 1/DAY
     Dates: start: 2008, end: 2009
  90. TRAMADOL HYDROCHLORIDE [Interacting]
     Active Substance: TRAMADOL HYDROCHLORIDE
     Indication: Product used for unknown indication
     Dosage: 4 CYCLICAL, 1/DAY
     Dates: start: 2008, end: 2009
  91. LORAZEPAM [Interacting]
     Active Substance: LORAZEPAM
     Indication: Product used for unknown indication
     Dosage: DOSAGE FORM : UNSPECIFIED
     Route: 048
     Dates: start: 20110224, end: 20110404
  92. LORAZEPAM [Interacting]
     Active Substance: LORAZEPAM
     Indication: Product used for unknown indication
     Dosage: DOSAGE FORM : UNSPECIFIED
     Route: 048
     Dates: start: 20110224, end: 20110404
  93. CODEINE [Interacting]
     Active Substance: CODEINE
     Indication: Serotonin syndrome
     Route: 048
     Dates: start: 2008, end: 2008
  94. CODEINE [Interacting]
     Active Substance: CODEINE
     Indication: Analgesic therapy
     Route: 048
     Dates: start: 20110224, end: 20110410
  95. CODEINE [Interacting]
     Active Substance: CODEINE
     Indication: Analgesic therapy
     Dosage: DOSAGE FORM : UNSPECIFIED, 15-30 MG
     Route: 048
     Dates: start: 2002, end: 2002
  96. CODEINE [Interacting]
     Active Substance: CODEINE
     Indication: Analgesic therapy
     Dosage: DOSAGE FORM : UNSPECIFIED, 15-30 MG
     Route: 048
     Dates: start: 2002, end: 2002
  97. CODEINE [Interacting]
     Active Substance: CODEINE
     Indication: Analgesic therapy
     Dosage: DOSAGE FORM : UNSPECIFIED, 15-30 MG
     Route: 048
     Dates: start: 2002, end: 2002
  98. PAROXETINE [Interacting]
     Active Substance: PAROXETINE
     Indication: Post-traumatic stress disorder
     Dosage: 60 MG, QD (20 MG 3 TIMES PER DAY)
     Route: 048
     Dates: start: 1997, end: 201105
  99. PAROXETINE [Interacting]
     Active Substance: PAROXETINE
     Indication: Post-traumatic stress disorder
     Dosage: (20 MG THREE TIMES A DAY)
     Route: 048
     Dates: start: 201105, end: 20110706
  100. PAROXETINE [Interacting]
     Active Substance: PAROXETINE
     Indication: Depression
     Dosage: (20 MG THREE TIMES A DAY)
     Route: 048
     Dates: start: 199908, end: 201105
  101. PAROXETINE [Interacting]
     Active Substance: PAROXETINE
     Indication: Depression
     Route: 048
     Dates: start: 1996, end: 201105
  102. PAROXETINE [Interacting]
     Active Substance: PAROXETINE
     Indication: Depression
     Route: 048
     Dates: start: 19990801, end: 20110706
  103. PAROXETINE [Interacting]
     Active Substance: PAROXETINE
     Indication: Depression
     Route: 048
     Dates: start: 19990801, end: 201105
  104. PAROXETINE [Interacting]
     Active Substance: PAROXETINE
     Indication: Depression
     Route: 048
     Dates: start: 1997, end: 201105

REACTIONS (89)
  - Fatigue [Not Recovered/Not Resolved]
  - Drooling [Unknown]
  - Illness [Unknown]
  - Swollen tongue [Unknown]
  - Seizure [Unknown]
  - Premature labour [Unknown]
  - Exposure during pregnancy [Unknown]
  - Gastric pH decreased [Unknown]
  - Vomiting [Unknown]
  - Feeling of body temperature change [Unknown]
  - Vision blurred [Unknown]
  - Psychotic disorder [Recovered/Resolved]
  - Feeling jittery [Unknown]
  - Neuroleptic malignant syndrome [Unknown]
  - Paraesthesia [Unknown]
  - Pallor [Unknown]
  - Dystonia [Unknown]
  - Blood sodium decreased [Unknown]
  - Cyanosis [Unknown]
  - Hypoaesthesia oral [Unknown]
  - Urinary retention [Unknown]
  - Sleep disorder [Unknown]
  - Restlessness [Unknown]
  - Feeling of despair [Unknown]
  - Pyrexia [Unknown]
  - Incontinence [Not Recovered/Not Resolved]
  - Cogwheel rigidity [Unknown]
  - Disorientation [Not Recovered/Not Resolved]
  - Drug ineffective [Unknown]
  - Muscle spasms [Not Recovered/Not Resolved]
  - Heart rate increased [Unknown]
  - Dyspnoea [Unknown]
  - Asthenia [Unknown]
  - Balance disorder [Unknown]
  - Nightmare [Unknown]
  - Delirium [Unknown]
  - Visual impairment [Unknown]
  - Serotonin syndrome [Not Recovered/Not Resolved]
  - Hyperhidrosis [Unknown]
  - Eye pain [Unknown]
  - Maternal exposure during pregnancy [Unknown]
  - Toxicity to various agents [Unknown]
  - Drug interaction [Unknown]
  - Parosmia [Unknown]
  - Schizophrenia [Unknown]
  - Therapeutic product ineffective [Unknown]
  - Depersonalisation/derealisation disorder [Not Recovered/Not Resolved]
  - Dissociation [Not Recovered/Not Resolved]
  - Contusion [Not Recovered/Not Resolved]
  - Drug withdrawal syndrome [Unknown]
  - Tremor [Not Recovered/Not Resolved]
  - Off label use [Unknown]
  - Paralysis [Unknown]
  - Swelling face [Unknown]
  - Dyskinesia [Unknown]
  - Diarrhoea [Unknown]
  - Depression [Unknown]
  - Decreased appetite [Unknown]
  - Hypoaesthesia [Not Recovered/Not Resolved]
  - Confusional state [Not Recovered/Not Resolved]
  - Mood swings [Unknown]
  - Disturbance in attention [Unknown]
  - Mania [Unknown]
  - Anxiety [Unknown]
  - Mydriasis [Unknown]
  - Tinnitus [Unknown]
  - Sensory loss [Unknown]
  - Hallucinations, mixed [Unknown]
  - Muscle disorder [Unknown]
  - Gait disturbance [Unknown]
  - Somnolence [Not Recovered/Not Resolved]
  - Aphasia [Not Recovered/Not Resolved]
  - Tachycardia [Unknown]
  - Skin discolouration [Not Recovered/Not Resolved]
  - H1N1 influenza [Unknown]
  - Muscle rigidity [Unknown]
  - Headache [Unknown]
  - Dizziness [Unknown]
  - Restless legs syndrome [Not Recovered/Not Resolved]
  - Speech disorder [Unknown]
  - Pruritus [Unknown]
  - Emotional disorder [Unknown]
  - Suicidal ideation [Not Recovered/Not Resolved]
  - Limb injury [Unknown]
  - Musculoskeletal stiffness [Not Recovered/Not Resolved]
  - Arthralgia [Unknown]
  - Menstrual disorder [Unknown]
  - Agitation [Unknown]
  - Derealisation [Not Recovered/Not Resolved]

NARRATIVE: CASE EVENT DATE: 20030101
